FAERS Safety Report 9495949 (Version 2)
Quarter: 2013Q3

REPORT INFORMATION
  Report Type: Report from Study
  Country: US (occurrence: US)
  Receive Date: 20130904
  Receipt Date: 20130925
  Transmission Date: 20140515
  Serious: Yes (Death)
  Sender: FDA-Public Use
  Company Number: US-ROCHE-1270153

PATIENT
  Age: 72 Year
  Sex: Male
  Weight: 92.16 kg

DRUGS (5)
  1. CELLCEPT [Suspect]
     Indication: HEART TRANSPLANT
     Dosage: LONG STANDING
     Route: 048
  2. RAPAMUNE [Suspect]
     Indication: HEART TRANSPLANT
     Dosage: LONG STANDING
     Route: 048
  3. FUROSEMIDE [Concomitant]
     Indication: SWELLING
     Dosage: LONG STANDING
     Route: 048
  4. NYSTATIN [Concomitant]
     Indication: CANDIDA INFECTION
     Route: 048
     Dates: start: 20130729
  5. MORPHINE [Concomitant]
     Indication: PAIN
     Dosage: PER TUBE PRN
     Route: 048
     Dates: start: 201308

REACTIONS (2)
  - Squamous cell carcinoma [Fatal]
  - Stomatitis radiation [Fatal]
